FAERS Safety Report 4944134-1 (Version None)
Quarter: 2006Q1

REPORT INFORMATION
  Report Type: 
  Country: None (occurrence: None)
  Receive Date: 20060309
  Receipt Date: 20060222
  Transmission Date: 20060701
  Serious: Yes (Other)
  Sender: FDA-Public Use
  Company Number: 006669

PATIENT
  Age: 18 Year
  Sex: Female
  Weight: 55.3 kg

DRUGS (4)
  1. AMPHETAMINE SALT COMBO (DEXTROAMPHETAMINE SACCHARATE, AMPHETAMINE ASPA [Suspect]
     Indication: ATTENTION DEFICIT/HYPERACTIVITY DISORDER
     Dosage: SEE IMAGE
     Route: 048
     Dates: start: 20020101, end: 20050101
  2. AMPHETAMINE SALT COMBO (DEXTROAMPHETAMINE SACCHARATE, AMPHETAMINE ASPA [Suspect]
     Indication: ATTENTION DEFICIT/HYPERACTIVITY DISORDER
     Dosage: SEE IMAGE
     Route: 048
     Dates: start: 20050101, end: 20060206
  3. ORTHO TRI-CYCLEN LO (ETHINYLESTRADIOL, NORGESTIMATE) [Concomitant]
     Indication: MUSCLE SPASMS
     Dates: end: 20060101
  4. CELEXA [Concomitant]

REACTIONS (8)
  - ANGINA PECTORIS [None]
  - CARDIAC DISORDER [None]
  - CHEST PAIN [None]
  - INFLUENZA [None]
  - MYOCARDIAL INFARCTION [None]
  - PARAESTHESIA [None]
  - PYREXIA [None]
  - VOMITING [None]
